FAERS Safety Report 8614302-6 (Version None)
Quarter: 2012Q3

REPORT INFORMATION
  Report Type: 
  Country: None (occurrence: None)
  Receive Date: 20120823
  Receipt Date: 20120813
  Transmission Date: 20120928
  Serious: Yes (Other)
  Sender: FDA-Public Use
  Company Number: US-SANOFI-AVENTIS-2012SA058437

PATIENT
  Age: 67 Year
  Sex: Female

DRUGS (3)
  1. LANTUS [Suspect]
     Dosage: DOSE:40 UNIT(S)
     Route: 058
     Dates: start: 20000101
  2. SOLOSTAR [Suspect]
     Dates: start: 20000101
  3. NOVOLOG [Suspect]

REACTIONS (3)
  - TOOTH DISORDER [None]
  - HEADACHE [None]
  - LIMB OPERATION [None]
